FAERS Safety Report 9022946 (Version 1)
Quarter: 2013Q1

REPORT INFORMATION
  Report Type: Spontaneous
  Country: US (occurrence: US)
  Receive Date: 20130120
  Receipt Date: 20130120
  Transmission Date: 20140127
  Serious: No
  Sender: FDA-Public Use
  Company Number: US-ALLERGAN-1216354US

PATIENT
  Age: 35 Year
  Sex: Female

DRUGS (4)
  1. BOTOX COSMETIC [Suspect]
     Indication: SKIN WRINKLING
     Dosage: 40 UNITS, SINGLE
     Route: 030
     Dates: start: 20121108, end: 20121108
  2. BOTOX COSMETIC [Suspect]
     Indication: SKIN WRINKLING
  3. PAIN MEDICATIONS [Concomitant]
     Indication: BACK PAIN
     Dosage: UNK
  4. BIRTH CONTROL PILLS [Concomitant]
     Indication: CONTRACEPTION
     Dosage: UNK

REACTIONS (4)
  - Influenza like illness [Recovering/Resolving]
  - Neck pain [Recovered/Resolved]
  - Headache [Recovered/Resolved]
  - Injection site bruising [Recovered/Resolved]
